FAERS Safety Report 22317847 (Version 2)
Quarter: 2023Q4

REPORT INFORMATION
  Report Type: Other
  Country: US (occurrence: None)
  Receive Date: 20230515
  Receipt Date: 20231218
  Transmission Date: 20240109
  Serious: Yes (Other)
  Sender: FDA-Public Use
  Company Number: US-ROCHE-3135571

PATIENT
  Age: 69 Year
  Sex: Female

DRUGS (9)
  1. OCREVUS [Suspect]
     Active Substance: OCRELIZUMAB
     Indication: Multiple sclerosis
     Dosage: THEN 600 MG EVERY 6 MONTHS. DATE OF SERVICE 08/NOV/2023.
     Route: 042
  2. BISACODYL [Concomitant]
     Active Substance: BISACODYL
  3. VOLTAREN [Concomitant]
     Active Substance: DICLOFENAC SODIUM
  4. DILTIAZEM [Concomitant]
     Active Substance: DILTIAZEM
  5. MICROZIDE (UNITED STATES) [Concomitant]
  6. AVAPRO [Concomitant]
     Active Substance: IRBESARTAN
  7. PRILOSEC [Concomitant]
     Active Substance: OMEPRAZOLE MAGNESIUM
  8. POTASSIUM [Concomitant]
     Active Substance: POTASSIUM
  9. EFFEXOR [Concomitant]
     Active Substance: VENLAFAXINE HYDROCHLORIDE

REACTIONS (2)
  - Off label use [Unknown]
  - Urinary tract infection [Unknown]
